FAERS Safety Report 21097371 (Version 2)
Quarter: 2022Q3

REPORT INFORMATION
  Report Type: Spontaneous
  Country: US (occurrence: US)
  Receive Date: 20220719
  Receipt Date: 20220809
  Transmission Date: 20221027
  Serious: No
  Sender: FDA-Public Use
  Company Number: US-BIOVITRUM-2022US08651

PATIENT
  Age: 41 Year
  Sex: Female

DRUGS (3)
  1. KINERET [Suspect]
     Active Substance: ANAKINRA
     Indication: Immune thrombocytopenia
     Dates: start: 202111
  2. KINERET [Suspect]
     Active Substance: ANAKINRA
     Indication: Thrombotic microangiopathy
     Dates: start: 202206
  3. CABLIVI [Concomitant]
     Active Substance: CAPLACIZUMAB-YHDP

REACTIONS (10)
  - Rash macular [Unknown]
  - Peripheral swelling [Unknown]
  - Abdominal distension [Unknown]
  - Injection site erythema [Unknown]
  - Injection site pain [Unknown]
  - Injection site swelling [Unknown]
  - Injection site pruritus [Unknown]
  - Injection site induration [Unknown]
  - Product dose omission issue [Unknown]
  - Off label use [Unknown]

NARRATIVE: CASE EVENT DATE: 20211101
